FAERS Safety Report 9206810 (Version 2)
Quarter: 2013Q2

REPORT INFORMATION
  Report Type: Spontaneous
  Country: US (occurrence: US)
  Receive Date: 20130403
  Receipt Date: 20130423
  Transmission Date: 20140414
  Serious: No
  Sender: FDA-Public Use
  Company Number: US-VERTEX PHARMACEUTICALS INC.-2013-004365

PATIENT
  Age: 56 Year
  Sex: Female

DRUGS (3)
  1. INCIVEK [Suspect]
     Indication: HEPATITIS C
     Dosage: UNK
     Route: 048
     Dates: start: 20130218
  2. RIBAVIRIN [Suspect]
     Indication: HEPATITIS C
     Dosage: 1200 G, QD
     Dates: start: 20130218
  3. PEGINTERFERON [Suspect]
     Indication: HEPATITIS C
     Dosage: 180 ?G, QW
     Dates: start: 20130218

REACTIONS (3)
  - Rash pustular [Recovered/Resolved]
  - Skin exfoliation [Not Recovered/Not Resolved]
  - Pruritus [Recovered/Resolved]
